FAERS Safety Report 19953886 (Version 1)
Quarter: 2021Q4

REPORT INFORMATION
  Report Type: Other
  Country: IN (occurrence: IN)
  Receive Date: 20211013
  Receipt Date: 20211013
  Transmission Date: 20220303
  Serious: Yes (Life-Threatening)
  Sender: FDA-Public Use
  Company Number: IN-B.BRAUN MEDICAL INC.-2120516

PATIENT
  Age: 62 Year
  Sex: Male

DRUGS (1)
  1. GLYCINE [Suspect]
     Active Substance: GLYCINE
     Indication: Wound treatment

REACTIONS (1)
  - Encephalopathy [Recovered/Resolved]
